FAERS Safety Report 10203641 (Version 1)
Quarter: 2014Q2

REPORT INFORMATION
  Report Type: Spontaneous
  Country: GB (occurrence: None)
  Receive Date: 20140523
  Receipt Date: 20140523
  Transmission Date: 20141212
  Serious: Yes (Disabling, Other)
  Sender: FDA-Public Use
  Company Number: AUR-APL-2014-05617

PATIENT
  Age: 94 Year
  Sex: Female

DRUGS (9)
  1. ALENDRONIC ACID [Suspect]
     Indication: FRACTURE
     Route: 048
     Dates: start: 201308
  2. ADCAL-D3 (LEKOVIT CA) [Concomitant]
  3. CLENIL MODULITE (BECLOMETASONE DIPROPIONATE) [Concomitant]
  4. FUROSEMIDE (FUROSEMIDE) [Concomitant]
  5. LEVOTHYROXINE (LEVOTHYROXINE) [Concomitant]
  6. LISINOPRIL (LISINOPRIL) [Concomitant]
  7. QUININE (QUININE) [Concomitant]
  8. RANITIDINE (RANITIDINE) [Concomitant]
  9. SIMVASTATIN (SIMVASTATIN) [Concomitant]

REACTIONS (3)
  - Fall [None]
  - Femur fracture [None]
  - Fracture nonunion [None]
